FAERS Safety Report 14417296 (Version 1)
Quarter: 2018Q1

REPORT INFORMATION
  Report Type: Spontaneous
  Country: US (occurrence: US)
  Receive Date: 20180119
  Receipt Date: 20180119
  Transmission Date: 20180509
  Serious: No
  Sender: FDA-Public Use
  Company Number: None

PATIENT
  Sex: Female

DRUGS (9)
  1. URSODIOL. [Concomitant]
     Active Substance: URSODIOL
  2. METOPROLOL. [Concomitant]
     Active Substance: METOPROLOL
  3. LINZESS [Concomitant]
     Active Substance: LINACLOTIDE
  4. BENICAR [Concomitant]
     Active Substance: OLMESARTAN MEDOXOMIL
  5. CRESTOR [Concomitant]
     Active Substance: ROSUVASTATIN CALCIUM
  6. XANAX [Concomitant]
     Active Substance: ALPRAZOLAM
  7. OCALIVA [Suspect]
     Active Substance: OBETICHOLIC ACID
     Indication: CHOLANGITIS
     Route: 048
     Dates: start: 20160810
  8. BUPROPION. [Concomitant]
     Active Substance: BUPROPION
  9. GABAPENTIN. [Concomitant]
     Active Substance: GABAPENTIN

REACTIONS (1)
  - Pruritus [None]
